FAERS Safety Report 12566408 (Version 2)
Quarter: 2019Q4

REPORT INFORMATION
  Report Type: Spontaneous
  Country: US (occurrence: US)
  Receive Date: 20160718
  Receipt Date: 20191021
  Transmission Date: 20200122
  Serious: Yes (Other)
  Sender: FDA-Public Use
  Company Number: US-PFIZER INC-2016348092

PATIENT
  Age: 55 Year
  Sex: Male

DRUGS (2)
  1. VIAGRA [Suspect]
     Active Substance: SILDENAFIL CITRATE
     Indication: ERECTILE DYSFUNCTION
     Dosage: 50 MG, (1/2 TABLET BY MOUTH ABOUT 30 MINUTES BEFORE ACTIVITY; FREQUENCY AVERAGED ABOUT ONCE A WEEK)
     Route: 048
     Dates: start: 20130208, end: 20140206
  2. VIAGRA [Suspect]
     Active Substance: SILDENAFIL CITRATE
     Dosage: 50 MG, (1/2 TABLET BY MOUTH ABOUT 30 MINUTES BEFORE ACTIVITY; FREQUENCY AVERAGED ABOUT ONCE A WEEK)
     Route: 048
     Dates: start: 20040715, end: 20151030

REACTIONS (2)
  - Hypertension [Unknown]
  - Malignant melanoma [Unknown]

NARRATIVE: CASE EVENT DATE: 20140910
